FAERS Safety Report 22096559 (Version 1)
Quarter: 2023Q1

REPORT INFORMATION
  Report Type: Other
  Country: US (occurrence: None)
  Receive Date: 20230315
  Receipt Date: 20230315
  Transmission Date: 20230417
  Serious: Yes (Other)
  Sender: FDA-Public Use
  Company Number: US-ROCHE-3300566

PATIENT
  Age: 53 Year
  Sex: Female
  Weight: 134.38 kg

DRUGS (29)
  1. OCREVUS [Suspect]
     Active Substance: OCRELIZUMAB
     Indication: Relapsing multiple sclerosis
     Dosage: NO
     Route: 042
  2. OCREVUS [Suspect]
     Active Substance: OCRELIZUMAB
     Indication: Secondary progressive multiple sclerosis
     Dosage: YES; DATE OF TREATMENT: 09/SEP/2022, 26/AUG/2022
     Route: 042
     Dates: start: 202208
  3. METHYLPREDNISOLONE [Concomitant]
     Active Substance: METHYLPREDNISOLONE
  4. ERGOCALCIFEROL [Concomitant]
     Active Substance: ERGOCALCIFEROL
  5. VITAMIN B12 [Concomitant]
     Active Substance: CYANOCOBALAMIN
  6. ALBUTEROL [Concomitant]
     Active Substance: ALBUTEROL
  7. AMITRIPTYLINE [Concomitant]
     Active Substance: AMITRIPTYLINE
  8. BACLOFEN [Concomitant]
     Active Substance: BACLOFEN
  9. BUSPIRONE [Concomitant]
     Active Substance: BUSPIRONE HYDROCHLORIDE
  10. CHOLESTYRAMINE [Concomitant]
     Active Substance: CHOLESTYRAMINE
  11. CYANOCOBALAMIN [Concomitant]
     Active Substance: CYANOCOBALAMIN
  12. DICYCLOMINE [Concomitant]
     Active Substance: DICYCLOMINE HYDROCHLORIDE
  13. DULOXETINE [Concomitant]
     Active Substance: DULOXETINE
  14. ERGOCALCIFEROL [Concomitant]
     Active Substance: ERGOCALCIFEROL
  15. FLUCONAZOLE [Concomitant]
     Active Substance: FLUCONAZOLE
  16. HYDROXYZINE [Concomitant]
     Active Substance: HYDROXYZINE HYDROCHLORIDE
  17. HYOSCYAMINE [Concomitant]
     Active Substance: HYOSCYAMINE
  18. LEVOTHYROXINE [Concomitant]
     Active Substance: LEVOTHYROXINE
  19. MECLIZINE [Concomitant]
     Active Substance: MECLIZINE HYDROCHLORIDE
  20. METHENAMINE [Concomitant]
     Active Substance: METHENAMINE
  21. MONTELUKAST [Concomitant]
     Active Substance: MONTELUKAST SODIUM
  22. NYSTOP [Concomitant]
     Active Substance: NYSTATIN
  23. ONDANSETRON [Concomitant]
     Active Substance: ONDANSETRON
  24. OXYBUTYNIN [Concomitant]
     Active Substance: OXYBUTYNIN
  25. PANTOPRAZOLE [Concomitant]
     Active Substance: PANTOPRAZOLE
  26. TOPIRAMATE [Concomitant]
     Active Substance: TOPIRAMATE
  27. HYDROCODONE [Concomitant]
     Active Substance: HYDROCODONE
  28. OXYCODONE [Concomitant]
     Active Substance: OXYCODONE
  29. RIZATRIPTAN [Concomitant]
     Active Substance: RIZATRIPTAN

REACTIONS (2)
  - Urinary tract infection [Recovered/Resolved]
  - Gait disturbance [Not Recovered/Not Resolved]

NARRATIVE: CASE EVENT DATE: 20221201
